FAERS Safety Report 19330087 (Version 3)
Quarter: 2021Q3

REPORT INFORMATION
  Report Type: Report from Study
  Country: BR (occurrence: BR)
  Receive Date: 20210528
  Receipt Date: 20210722
  Transmission Date: 20211014
  Serious: Yes (Other)
  Sender: FDA-Public Use
  Company Number: NVSC2021BR117168

PATIENT
  Age: 74 Year
  Sex: Male
  Weight: 100 kg

DRUGS (4)
  1. VALSARTAN. [Suspect]
     Active Substance: VALSARTAN
     Indication: HYPERTENSION
     Dosage: 1 DF, QD, 15 YEARS AGO
     Route: 065
  2. LOSARTAN. [Suspect]
     Active Substance: LOSARTAN
     Indication: HYPERTENSION
     Dosage: UNK
     Route: 065
  3. ARADOIS [Concomitant]
     Active Substance: LOSARTAN POTASSIUM
     Indication: HYPERTENSION
     Dosage: 50 MG, QD STOPPED ABOUT 6 YEARS AGO
     Route: 048
  4. OLMESARTAN [Concomitant]
     Active Substance: OLMESARTAN
     Indication: HYPERTENSION
     Dosage: 1 YEAR AGO
     Route: 065

REACTIONS (25)
  - Pruritus [Not Recovered/Not Resolved]
  - Skin exfoliation [Unknown]
  - Rhinitis allergic [Unknown]
  - Nail psoriasis [Not Recovered/Not Resolved]
  - Eye infection [Not Recovered/Not Resolved]
  - Eye discharge [Not Recovered/Not Resolved]
  - Pustule [Not Recovered/Not Resolved]
  - Psoriatic arthropathy [Unknown]
  - Hepatic steatosis [Not Recovered/Not Resolved]
  - Dry skin [Not Recovered/Not Resolved]
  - Psoriasis [Not Recovered/Not Resolved]
  - Rash macular [Not Recovered/Not Resolved]
  - Drug hypersensitivity [Not Recovered/Not Resolved]
  - Blood cholesterol increased [Not Recovered/Not Resolved]
  - Arthritis [Not Recovered/Not Resolved]
  - Buttock injury [Not Recovered/Not Resolved]
  - Liver injury [Unknown]
  - Pruritus [Not Recovered/Not Resolved]
  - Eye allergy [Not Recovered/Not Resolved]
  - Ill-defined disorder [Unknown]
  - Arthralgia [Not Recovered/Not Resolved]
  - Food allergy [Not Recovered/Not Resolved]
  - Cataract [Recovered/Resolved]
  - Pain in extremity [Not Recovered/Not Resolved]
  - Eye inflammation [Not Recovered/Not Resolved]

NARRATIVE: CASE EVENT DATE: 202103
